FAERS Safety Report 6815475-8 (Version None)
Quarter: 2010Q3

REPORT INFORMATION
  Report Type: 
  Country: None (occurrence: None)
  Receive Date: 20100702
  Receipt Date: 20100618
  Transmission Date: 20110219
  Serious: No
  Sender: FDA-Public Use
  Company Number: B0631313A

PATIENT
  Sex: Female
  Weight: 52 kg

DRUGS (2)
  1. RELENZA [Suspect]
     Indication: INFLUENZA
     Dosage: 20MG PER DAY
     Route: 055
     Dates: start: 20091225, end: 20091229
  2. RITODRINE HYDROCHLORIDE [Concomitant]
     Dosage: 20MG PER DAY
     Route: 048
     Dates: start: 20100218, end: 20100302

REACTIONS (1)
  - DRUG EXPOSURE DURING PREGNANCY [None]
